FAERS Safety Report 7565951-8 (Version None)
Quarter: 2011Q2

REPORT INFORMATION
  Report Type: 
  Country: None (occurrence: None)
  Receive Date: 20110623
  Receipt Date: 20110617
  Transmission Date: 20111010
  Serious: Yes (Life-Threatening, Hospitalization, Other)
  Sender: FDA-Public Use
  Company Number: DE-ELI_LILLY_AND_COMPANY-DE201104004422

PATIENT
  Sex: Male
  Weight: 98 kg

DRUGS (10)
  1. RAMIPRIL [Concomitant]
     Indication: HYPERTENSION
     Dosage: 10 MG, UNK
  2. DIGIMERCK [Concomitant]
     Dosage: 1 MG, QD
  3. PROCORUM [Concomitant]
     Indication: ATRIAL FIBRILLATION
     Dosage: UNK UNK, BID
     Dates: start: 20090101
  4. ALLOPURINOL [Concomitant]
     Indication: HYPERURICAEMIA
     Dosage: 300 DF, QD
     Dates: start: 20080101
  5. ACETYLDIGOXIN [Concomitant]
     Indication: ATRIAL FIBRILLATION
     Dosage: .1 DF, QD
     Dates: start: 20070101
  6. BYETTA [Suspect]
     Indication: TYPE 1 DIABETES MELLITUS
     Dosage: 10 UG, BID
     Route: 058
     Dates: start: 20090317, end: 20100930
  7. TAMSULOSIN HCL [Concomitant]
     Indication: PROSTATIC ADENOMA
     Dosage: 0.4 DF, QD
     Dates: start: 20090101
  8. EUTHYROX [Concomitant]
     Indication: THYROID DISORDER
     Dosage: 200 UG, QD
     Dates: start: 20100101
  9. METFORMIN HCL [Concomitant]
     Indication: DIABETES MELLITUS
     Dosage: 1000 DF, BID
  10. SERTRALIN [Concomitant]
     Indication: DEPRESSION
     Dosage: 100 MG, QD

REACTIONS (5)
  - PROSTATIC ADENOMA [None]
  - ATRIAL FIBRILLATION [None]
  - ASCITES [None]
  - OFF LABEL USE [None]
  - PANCREATIC CARCINOMA [None]
